FAERS Safety Report 4505316-6 (Version None)
Quarter: 2004Q4

REPORT INFORMATION
  Report Type: 
  Country: None (occurrence: None)
  Receive Date: 20041015
  Receipt Date: 20040521
  Transmission Date: 20050328
  Serious: Yes (Disabling, Other)
  Sender: FDA-Public Use
  Company Number: 2004033865

PATIENT
  Age: 62 Year
  Sex: Female

DRUGS (2)
  1. NEURONTIN [Suspect]
     Indication: NEURALGIA
     Dosage: ORAL
     Route: 048
     Dates: start: 20030701
  2. GLIMEPIRIDE [Concomitant]

REACTIONS (7)
  - BLINDNESS [None]
  - EYE HAEMORRHAGE [None]
  - GLAUCOMA [None]
  - IMPAIRED HEALING [None]
  - PAIN EXACERBATED [None]
  - VISUAL DISTURBANCE [None]
  - VOMITING [None]
